FAERS Safety Report 8092895-8 (Version None)
Quarter: 2012Q1

REPORT INFORMATION
  Report Type: 
  Country: None (occurrence: None)
  Receive Date: 20120128
  Receipt Date: 20110815
  Transmission Date: 20120608
  Serious: No
  Sender: FDA-Public Use
  Company Number: US-ABBOTT-11P-163-0848386-00

PATIENT
  Age: 60 Year
  Sex: Female

DRUGS (6)
  1. RANEXA [Concomitant]
     Indication: ANGINA PECTORIS
     Dosage: 500 MG - TWICE DAILY
     Route: 048
  2. ATENOLOL [Concomitant]
     Indication: HYPERTENSION
     Dosage: 50 MG - ONE DAILY
     Route: 048
  3. FUROSEMIDE [Concomitant]
     Indication: HYPERTENSION
     Dosage: 20 MG - ONE DAILY
     Route: 048
  4. LYRICA [Concomitant]
     Indication: FIBROMYALGIA
     Dosage: 50 MG - TWICE DAILY
     Route: 048
  5. ASPIRIN [Concomitant]
     Indication: PRODUCT USED FOR UNKNOWN INDICATION
     Dosage: 325 MG - DAILY
     Route: 048
  6. HUMIRA [Suspect]
     Indication: PSORIASIS
     Route: 058
     Dates: start: 20110314, end: 20110601

REACTIONS (1)
  - DRUG INEFFECTIVE [None]
